FAERS Safety Report 9286657 (Version 1)
Quarter: 2013Q2

REPORT INFORMATION
  Report Type: Spontaneous
  Country: US (occurrence: US)
  Receive Date: 20130513
  Receipt Date: 20130513
  Transmission Date: 20140414
  Serious: No
  Sender: FDA-Public Use
  Company Number: US-ASTRAZENECA-2013SE31610

PATIENT
  Age: 90 Year
  Sex: Female
  Weight: 50.3 kg

DRUGS (6)
  1. PULMICORT FLEXHALER [Suspect]
     Route: 055
  2. BISOPROLOL FUMARATE [Concomitant]
  3. COZAAR [Concomitant]
  4. LASIX [Concomitant]
  5. ZOCOR [Concomitant]
  6. NASONEX [Concomitant]

REACTIONS (3)
  - Blood pressure increased [Unknown]
  - Dysphonia [Unknown]
  - Throat irritation [Unknown]
